FAERS Safety Report 22370640 (Version 1)
Quarter: 2023Q2

REPORT INFORMATION
  Report Type: Report from Study
  Country: JP (occurrence: JP)
  Receive Date: 20230526
  Receipt Date: 20230526
  Transmission Date: 20230722
  Serious: Yes (Other)
  Sender: FDA-Public Use
  Company Number: JP-NBI-J202206841BIPI

PATIENT
  Age: 61 Year
  Sex: Female

DRUGS (15)
  1. OFEV [Suspect]
     Active Substance: NINTEDANIB
     Indication: Interstitial lung disease
     Route: 048
     Dates: start: 20210225, end: 20221123
  2. OFEV [Suspect]
     Active Substance: NINTEDANIB
     Route: 048
     Dates: start: 20221222, end: 20230120
  3. VONOPRAZAN FUMARATE [Concomitant]
     Active Substance: VONOPRAZAN FUMARATE
     Indication: Systemic scleroderma
     Route: 065
  4. ECABET SODIUM [Concomitant]
     Active Substance: ECABET SODIUM
     Indication: Systemic scleroderma
     Route: 065
  5. ADCIRCA [Concomitant]
     Active Substance: TADALAFIL
     Indication: Systemic scleroderma
     Route: 065
  6. AMOXICILLIN [Concomitant]
     Active Substance: AMOXICILLIN
     Indication: Systemic scleroderma
     Route: 065
  7. ZOLPIDEM TARTRATE [Concomitant]
     Active Substance: ZOLPIDEM TARTRATE
     Indication: Product used for unknown indication
     Route: 065
  8. ALPROSTADIL [Concomitant]
     Active Substance: ALPROSTADIL
     Indication: Systemic scleroderma
     Dosage: UNIT DOSE: 2 DOSAGE FORM
     Route: 065
  9. TRACLEER [Concomitant]
     Active Substance: BOSENTAN
     Indication: Systemic scleroderma
     Route: 065
  10. MOSAPRIDE CITRATE [Concomitant]
     Active Substance: MOSAPRIDE CITRATE
     Indication: Systemic scleroderma
     Route: 065
  11. AUGMENTIN [Concomitant]
     Active Substance: AMOXICILLIN\CLAVULANATE POTASSIUM
     Indication: Systemic scleroderma
     Route: 065
  12. VOLTAREN [Concomitant]
     Active Substance: DICLOFENAC SODIUM
     Indication: Systemic scleroderma
     Route: 065
  13. TALION [Concomitant]
     Indication: Product used for unknown indication
     Route: 065
  14. CINAL [Concomitant]
     Indication: Systemic scleroderma
     Route: 065
  15. ALINAMIN F [Concomitant]
     Active Substance: FURSULTIAMINE HYDROCHLORIDE
     Indication: Systemic scleroderma
     Route: 065

REACTIONS (3)
  - Lung neoplasm malignant [Recovered/Resolved]
  - Bronchial fistula [Recovered/Resolved]
  - Dyspnoea [Recovered/Resolved]

NARRATIVE: CASE EVENT DATE: 20211223
